FAERS Safety Report 5581168-0 (Version None)
Quarter: 2007Q4

REPORT INFORMATION
  Report Type: 
  Country: None (occurrence: None)
  Receive Date: 20071227
  Receipt Date: 20071213
  Transmission Date: 20080405
  Serious: Yes (Other)
  Sender: FDA-Public Use
  Company Number: GXKR2007FR10682

PATIENT
  Sex: 0

DRUGS (2)
  1. CLARITHROMYCIN [Suspect]
  2. CARBAMAZEPINE [Suspect]

REACTIONS (4)
  - ANTICONVULSANT DRUG LEVEL ABOVE THERAPEUTIC [None]
  - ATAXIA [None]
  - CONVULSION [None]
  - DRUG INTERACTION [None]
